FAERS Safety Report 8119919-3 (Version None)
Quarter: 2012Q1

REPORT INFORMATION
  Report Type: 
  Country: None (occurrence: None)
  Receive Date: 20120207
  Receipt Date: 20120131
  Transmission Date: 20120608
  Serious: No
  Sender: FDA-Public Use
  Company Number: US-ALLERGAN-1116820US

PATIENT
  Age: 82 Year
  Sex: Female

DRUGS (7)
  1. AVALIDE [Concomitant]
     Dosage: 150/12.5
  2. DORZOLAMIDE [Concomitant]
     Indication: GLAUCOMA
     Dosage: 1 GTT, BID
     Route: 047
     Dates: start: 20090923
  3. RESTASIS [Suspect]
     Indication: DRY EYE
     Dosage: 2 GTT, BID
     Route: 047
     Dates: start: 20100527
  4. COMBIGAN [Concomitant]
     Indication: GLAUCOMA
     Dosage: 1 GTT, BID
     Route: 047
     Dates: start: 20090527
  5. LUMIGAN [Concomitant]
     Indication: GLAUCOMA
     Dosage: 2 GTT, QHS
     Route: 047
  6. NEURONTIN [Concomitant]
  7. MECLIZINE [Concomitant]

REACTIONS (4)
  - WRONG TECHNIQUE IN DRUG USAGE PROCESS [None]
  - DIZZINESS [None]
  - EYELID DISORDER [None]
  - DRUG INEFFECTIVE [None]
